FAERS Safety Report 16842632 (Version 8)
Quarter: 2020Q1

REPORT INFORMATION
  Report Type: Spontaneous
  Country: US (occurrence: US)
  Receive Date: 20190924
  Receipt Date: 20200326
  Transmission Date: 20200409
  Serious: No
  Sender: FDA-Public Use
  Company Number: US-BIOGEN-2019BI00786080

PATIENT
  Sex: Male
  Weight: 119.86 kg

DRUGS (5)
  1. TYSABRI [Suspect]
     Active Substance: NATALIZUMAB
     Route: 065
     Dates: end: 20190130
  2. TYSABRI [Suspect]
     Active Substance: NATALIZUMAB
     Dosage: INFUSED OVER 1 HOUR
     Route: 042
  3. TYSABRI [Suspect]
     Active Substance: NATALIZUMAB
     Route: 065
     Dates: start: 20190730
  4. TYSABRI [Suspect]
     Active Substance: NATALIZUMAB
     Indication: MULTIPLE SCLEROSIS
     Route: 065
     Dates: start: 20171002, end: 201902
  5. TYSABRI [Suspect]
     Active Substance: NATALIZUMAB
     Route: 065
     Dates: end: 20190629

REACTIONS (9)
  - Multiple sclerosis relapse [Not Recovered/Not Resolved]
  - Gastric disorder [Unknown]
  - Gastrointestinal disorder [Unknown]
  - Lymphocytosis [Unknown]
  - Nausea [Unknown]
  - Vomiting [Unknown]
  - Eosinophilia [Recovered/Resolved]
  - Dyslexia [Unknown]
  - Immune system disorder [Unknown]
